FAERS Safety Report 9914243 (Version 1)
Quarter: 2014Q1

REPORT INFORMATION
  Report Type: Spontaneous
  Country: US (occurrence: None)
  Receive Date: 20140218
  Receipt Date: 20140218
  Transmission Date: 20141002
  Serious: Yes (Other)
  Sender: FDA-Public Use
  Company Number: 2014AP000857

PATIENT
  Age: 74 Year
  Sex: Male

DRUGS (2)
  1. PAROXETINE HCL TABLETS [Suspect]
     Indication: PARKINSON^S DISEASE
  2. SELEGILINE [Concomitant]

REACTIONS (4)
  - Abasia [None]
  - Spinal cord oedema [None]
  - Hypoaesthesia [None]
  - Paraesthesia [None]
